FAERS Safety Report 16172827 (Version 4)
Quarter: 2020Q4

REPORT INFORMATION
  Report Type: Other
  Country: US (occurrence: US)
  Receive Date: 20190409
  Receipt Date: 20201127
  Transmission Date: 20210113
  Serious: Yes (Other)
  Sender: FDA-Public Use
  Company Number: US-ROCHE-2296208

PATIENT
  Age: 65 Year
  Sex: Female
  Weight: 61.74 kg

DRUGS (16)
  1. COLECALCIFEROL [Concomitant]
     Active Substance: CHOLECALCIFEROL
  2. FLONASE [Concomitant]
     Active Substance: FLUTICASONE PROPIONATE
  3. ADVAIR HFA [Concomitant]
     Active Substance: FLUTICASONE PROPIONATE\SALMETEROL XINAFOATE
  4. ZITHROMAX [Concomitant]
     Active Substance: AZITHROMYCIN DIHYDRATE
  5. TESSALON [Concomitant]
     Active Substance: BENZONATATE
  6. CALCITRATE [Concomitant]
     Active Substance: CALCIUM CITRATE
  7. FOLVITE [Concomitant]
     Active Substance: FOLIC ACID
  8. OCREVUS [Suspect]
     Active Substance: OCRELIZUMAB
     Indication: PRIMARY PROGRESSIVE MULTIPLE SCLEROSIS
     Route: 042
     Dates: start: 20180905
  9. OCREVUS [Suspect]
     Active Substance: OCRELIZUMAB
     Route: 065
  10. OCREVUS [Suspect]
     Active Substance: OCRELIZUMAB
     Route: 065
     Dates: start: 20180305
  11. PROVENTIL [Concomitant]
     Active Substance: ALBUTEROL
  12. LIORESAL [Concomitant]
     Active Substance: BACLOFEN
  13. PROLIA [Concomitant]
     Active Substance: DENOSUMAB
  14. OCREVUS [Suspect]
     Active Substance: OCRELIZUMAB
     Indication: SECONDARY PROGRESSIVE MULTIPLE SCLEROSIS
     Dosage: DAY1 AND DAY 15?DATE OF TREATMENT- 06/MAR/2019, 03/MAR/2020, 03/SEP/2019, 20/FEB/2020, 05/SEP/2018,
     Route: 042
     Dates: start: 20180305
  15. KLONOPIN [Concomitant]
     Active Substance: CLONAZEPAM
  16. COLESTID [Concomitant]
     Active Substance: COLESTIPOL HYDROCHLORIDE

REACTIONS (4)
  - Multiple sclerosis [Unknown]
  - Pneumonia [Not Recovered/Not Resolved]
  - Therapeutic response shortened [Unknown]
  - Pneumonia [Not Recovered/Not Resolved]

NARRATIVE: CASE EVENT DATE: 20200909
